FAERS Safety Report 19116267 (Version 1)
Quarter: 2021Q2

REPORT INFORMATION
  Report Type: Spontaneous
  Country: FR (occurrence: FR)
  Receive Date: 20210409
  Receipt Date: 20210409
  Transmission Date: 20210717
  Serious: Yes (Hospitalization)
  Sender: FDA-Public Use
  Company Number: FR-TEVA-2021-FR-1898803

PATIENT
  Age: 59 Year
  Sex: Male
  Weight: 60.4 kg

DRUGS (9)
  1. CISPLATINE MYLAN [Suspect]
     Active Substance: CISPLATIN
     Indication: LUNG NEOPLASM MALIGNANT
     Dosage: 125 MG
     Route: 042
     Dates: start: 20210225, end: 20210225
  2. CLARADOL 500 MG CAFEINE, COMPRIME [Suspect]
     Active Substance: ACETAMINOPHEN\CAFFEINE
     Indication: SCIATICA
     Dosage: 2 DOSAGE FORMS
     Route: 048
     Dates: end: 20210302
  3. PRAZEPAM [Concomitant]
     Active Substance: PRAZEPAM
  4. SIMVASTATINE [Suspect]
     Active Substance: SIMVASTATIN
     Indication: DYSLIPIDAEMIA
     Dosage: 1 DOSAGE FORMS
     Route: 048
     Dates: end: 20210302
  5. BETAHISTINE (CHLORHYDRATE) [Concomitant]
     Active Substance: BETAHISTINE HYDROCHLORIDE
  6. ACIDE FOLIQUE CCD 0,4 MG, COMPRIME [Concomitant]
  7. ALIMTA [Suspect]
     Active Substance: PEMETREXED DISODIUM
     Indication: LUNG NEOPLASM MALIGNANT
     Dosage: 850 MG
     Route: 042
     Dates: start: 20210225, end: 20210225
  8. KEPPRA [Suspect]
     Active Substance: LEVETIRACETAM
     Indication: MYOCLONUS
     Dosage: 500 MG
     Route: 048
     Dates: start: 20210301, end: 20210302
  9. IZALGI [Suspect]
     Active Substance: ACETAMINOPHEN\OPIUM
     Indication: SCIATICA
     Dosage: 1 DOSAGE FORMS
     Route: 048
     Dates: end: 20210302

REACTIONS (1)
  - Lichenoid keratosis [Recovering/Resolving]

NARRATIVE: CASE EVENT DATE: 20210302
